FAERS Safety Report 13820667 (Version 1)
Quarter: 2017Q3

REPORT INFORMATION
  Report Type: Spontaneous
  Country: US (occurrence: US)
  Receive Date: 20170801
  Receipt Date: 20170801
  Transmission Date: 20171127
  Serious: Yes (Other)
  Sender: FDA-Public Use
  Company Number: US-BRISTOL-MYERS SQUIBB COMPANY-BMS-2017-066190

PATIENT
  Age: 89 Year
  Sex: Female

DRUGS (2)
  1. IRON [Concomitant]
     Active Substance: IRON
     Indication: PRODUCT USED FOR UNKNOWN INDICATION
     Route: 065
  2. ELIQUIS [Suspect]
     Active Substance: APIXABAN
     Indication: PRODUCT USED FOR UNKNOWN INDICATION
     Dosage: UNK UNK, BID
     Route: 048

REACTIONS (6)
  - Varicose vein [Unknown]
  - Gait disturbance [Unknown]
  - Atrial fibrillation [Unknown]
  - Blood cholesterol decreased [Unknown]
  - Thinking abnormal [Unknown]
  - Fatigue [Unknown]
